FAERS Safety Report 11398872 (Version 1)
Quarter: 2015Q3

REPORT INFORMATION
  Report Type: Report from Study
  Country: CA (occurrence: CA)
  Receive Date: 20150820
  Receipt Date: 20150820
  Transmission Date: 20151125
  Serious: Yes (Other)
  Sender: FDA-Public Use
  Company Number: CA-JNJFOC-20150809408

PATIENT
  Sex: Female
  Weight: 99 kg

DRUGS (1)
  1. REMICADE [Suspect]
     Active Substance: INFLIXIMAB
     Indication: CROHN^S DISEASE
     Route: 042
     Dates: start: 20110101

REACTIONS (8)
  - Headache [Unknown]
  - Bone disorder [Unknown]
  - Intestinal stenosis [Unknown]
  - Muscular weakness [Unknown]
  - Oropharyngeal pain [Unknown]
  - Asthenia [Unknown]
  - Abdominal pain upper [Unknown]
  - Wheezing [Unknown]

NARRATIVE: CASE EVENT DATE: 2015
